FAERS Safety Report 13900614 (Version 1)
Quarter: 2017Q3

REPORT INFORMATION
  Report Type: Spontaneous
  Country: SK (occurrence: SK)
  Receive Date: 20170824
  Receipt Date: 20170824
  Transmission Date: 20171127
  Serious: Yes (Hospitalization)
  Sender: FDA-Public Use
  Company Number: PHHY2017SK121982

PATIENT
  Sex: Male

DRUGS (4)
  1. KLIMICIN [Suspect]
     Active Substance: CLINDAMYCIN PHOSPHATE
     Indication: PNEUMONIA
     Dosage: 600 MG, Q8H
     Route: 042
     Dates: start: 20170324, end: 20170330
  2. HYDROCORTISONE. [Concomitant]
     Active Substance: HYDROCORTISONE
     Indication: HYPOPITUITARISM
     Dosage: 100 MG, TID
     Route: 065
  3. CEFOTAXIME [Suspect]
     Active Substance: CEFOTAXIME SODIUM
     Indication: PNEUMONIA
     Dosage: 2 G, Q8H
     Route: 042
     Dates: start: 20170324, end: 20170330
  4. DIFLUCAN [Suspect]
     Active Substance: FLUCONAZOLE
     Indication: PNEUMONIA
     Dosage: 200 MG, QD
     Route: 042
     Dates: start: 20170322, end: 20170328

REACTIONS (1)
  - Enterocolitis bacterial [Recovered/Resolved]

NARRATIVE: CASE EVENT DATE: 20170330
